FAERS Safety Report 15126740 (Version 8)
Quarter: 2019Q3

REPORT INFORMATION
  Report Type: Spontaneous
  Country: ES (occurrence: ES)
  Receive Date: 20180710
  Receipt Date: 20190930
  Transmission Date: 20191004
  Serious: Yes (Life-Threatening, Hospitalization, Other)
  Sender: FDA-Public Use
  Company Number: ES-MYLANLABS-2018M1047829

PATIENT
  Age: 74 Year
  Sex: Male

DRUGS (14)
  1. CARBAMAZEPINE. [Suspect]
     Active Substance: CARBAMAZEPINE
     Dosage: 200 MILLIGRAM, BID(DESCENDING REGIME UNTIL SUBSEQUENT WITHDRAWAL )
     Route: 065
     Dates: start: 20170607
  2. LACOSAMIDE. [Suspect]
     Active Substance: LACOSAMIDE
     Indication: TRIGEMINAL NEURALGIA
     Dosage: 100 MILLIGRAM, BID (200 MG,QD)
     Route: 042
     Dates: start: 201706
  3. CARBAMAZEPINE. [Suspect]
     Active Substance: CARBAMAZEPINE
     Indication: TRIGEMINAL NEURALGIA
     Dosage: 200 MILLIGRAM, BID (400 MG, QD)
     Route: 065
  4. CARBAMAZEPINE. [Suspect]
     Active Substance: CARBAMAZEPINE
     Dosage: DESCENDING REGIME UNTIL SUBSEQUENT WITHDRAWAL
     Route: 065
     Dates: end: 20170607
  5. ESLICARBAZEPINE [Suspect]
     Active Substance: ESLICARBAZEPINE
     Indication: TRIGEMINAL NEURALGIA
     Dosage: 400 MILLIGRAM, PM(SINGLE NIGHT DOSE)
     Route: 065
  6. TRAMADOL. [Concomitant]
     Active Substance: TRAMADOL
     Indication: ANALGESIC THERAPY
     Dosage: UNK,UNKNOWN DOSE
     Route: 065
  7. LACOSAMIDE. [Suspect]
     Active Substance: LACOSAMIDE
     Dosage: UNK
     Route: 065
  8. ENALAPRIL [Concomitant]
     Active Substance: ENALAPRIL
     Indication: PRODUCT USED FOR UNKNOWN INDICATION
     Dosage: 5 MILLIGRAM, BID (10 MG,QD)
     Route: 065
  9. NOLOTIL                            /06276702/ [Concomitant]
     Active Substance: METAMIZOLE MAGNESIUM
     Indication: ANALGESIC THERAPY
     Dosage: UNK
     Route: 065
  10. CARBAMAZEPINE. [Suspect]
     Active Substance: CARBAMAZEPINE
     Dosage: 200 MG/12HUNK
     Route: 065
  11. ESLICARBAZEPINE [Suspect]
     Active Substance: ESLICARBAZEPINE
     Dosage: 400 MILLIGRAM, QD(SINGLE NIGHT DOSE)
     Route: 065
     Dates: start: 201706
  12. CARBAMAZEPINE. [Suspect]
     Active Substance: CARBAMAZEPINE
     Dosage: 200 MILLIGRAM, QD
     Route: 065
     Dates: end: 2017
  13. CARBAMAZEPINA NORMON [Suspect]
     Active Substance: CARBAMAZEPINE
     Indication: TRIGEMINAL NEURALGIA
     Dosage: 200 MILLIGRAM, QD(DESCENDING REGIME UNTIL SUBSEQUENT WITHDRAWAL)
     Route: 065
     Dates: start: 201706, end: 2017
  14. PRIMPERAN [Concomitant]
     Active Substance: METOCLOPRAMIDE HYDROCHLORIDE
     Indication: ANALGESIC THERAPY
     Dosage: UNK,UNKNOWN DOSE
     Route: 065

REACTIONS (5)
  - Cardiac arrest [Unknown]
  - Off label use [Unknown]
  - Atrioventricular block complete [Unknown]
  - Cardio-respiratory arrest [Unknown]
  - Drug intolerance [Unknown]

NARRATIVE: CASE EVENT DATE: 20170612
